FAERS Safety Report 4684210-4 (Version None)
Quarter: 2005Q2

REPORT INFORMATION
  Report Type: 
  Country: None (occurrence: None)
  Receive Date: 20050607
  Receipt Date: 20050530
  Transmission Date: 20051028
  Serious: Yes (Disabling)
  Sender: FDA-Public Use
  Company Number: PHBS2005ES07672

PATIENT
  Age: 76 Year
  Sex: Male

DRUGS (5)
  1. ZOMETA [Suspect]
     Indication: MULTIPLE MYELOMA
     Dosage: 4 MG, QMO
     Route: 042
     Dates: start: 20030401, end: 20050201
  2. EPOGEN [Concomitant]
  3. CALCIUM SANDOZ FORTE D [Concomitant]
  4. VITAMIN D [Concomitant]
  5. FERROGRADUMET [Concomitant]

REACTIONS (6)
  - ADHESIOLYSIS [None]
  - ASEPTIC NECROSIS BONE [None]
  - BONE DISORDER [None]
  - ORAL INFECTION [None]
  - OSTEONECROSIS [None]
  - TOOTH EXTRACTION [None]
